FAERS Safety Report 12505288 (Version 3)
Quarter: 2016Q3

REPORT INFORMATION
  Report Type: Spontaneous
  Country: DK (occurrence: JP)
  Receive Date: 20160628
  Receipt Date: 20160818
  Transmission Date: 20161109
  Serious: Yes (Other)
  Sender: FDA-Public Use
  Company Number: JP-FRI-1000085688

PATIENT
  Age: 50 Year
  Sex: Female
  Weight: 44 kg

DRUGS (4)
  1. ESCITALOPRAM [Suspect]
     Active Substance: ESCITALOPRAM OXALATE
     Dosage: 10 MG
     Route: 048
     Dates: start: 20160411, end: 20160509
  2. ESCITALOPRAM [Suspect]
     Active Substance: ESCITALOPRAM OXALATE
     Dosage: 5 MG
     Route: 048
     Dates: start: 20160509, end: 20160601
  3. ESCITALOPRAM [Suspect]
     Active Substance: ESCITALOPRAM OXALATE
     Dosage: 20 MG
     Route: 048
     Dates: start: 20160314, end: 20160411
  4. ESCITALOPRAM [Suspect]
     Active Substance: ESCITALOPRAM OXALATE
     Indication: DEPRESSION
     Route: 048
     Dates: start: 20150619, end: 20160313

REACTIONS (2)
  - Electrocardiogram QT prolonged [Unknown]
  - Sinus bradycardia [Recovered/Resolved]

NARRATIVE: CASE EVENT DATE: 20160411
